FAERS Safety Report 25356527 (Version 2)
Quarter: 2025Q2

REPORT INFORMATION
  Report Type: Spontaneous
  Country: US (occurrence: US)
  Receive Date: 20250526
  Receipt Date: 20250526
  Transmission Date: 20250717
  Serious: No
  Sender: ALEXION PHARMACEUTICALS
  Company Number: US-AstraZeneca-CH-00872011AP

PATIENT

DRUGS (1)
  1. PULMICORT TURBUHALER [Suspect]
     Active Substance: BUDESONIDE
     Indication: Rhinitis allergic
     Route: 065

REACTIONS (4)
  - Drug ineffective [Unknown]
  - Product prescribing issue [Unknown]
  - Off label use [Unknown]
  - Product use issue [Unknown]
